FAERS Safety Report 5490819-0 (Version None)
Quarter: 2007Q4

REPORT INFORMATION
  Report Type: 
  Country: None (occurrence: None)
  Receive Date: 20071019
  Receipt Date: 20071008
  Transmission Date: 20080405
  Serious: Yes (Hospitalization)
  Sender: FDA-Public Use
  Company Number: ES-ROCHE-524607

PATIENT
  Age: 29 Year
  Sex: Male

DRUGS (1)
  1. INTERFERON ALFA [Suspect]
     Indication: HEPATITIS C
     Route: 065

REACTIONS (1)
  - DEMYELINATING POLYNEUROPATHY [None]
